FAERS Safety Report 8168782-3 (Version None)
Quarter: 2012Q1

REPORT INFORMATION
  Report Type: 
  Country: None (occurrence: None)
  Receive Date: 20120227
  Receipt Date: 20120215
  Transmission Date: 20120608
  Serious: Yes (Hospitalization)
  Sender: FDA-Public Use
  Company Number: US-ELI_LILLY_AND_COMPANY-US201202005128

PATIENT
  Sex: Female

DRUGS (13)
  1. PREDNISONE [Concomitant]
     Dosage: 14 MG, QD
  2. FLEXERIL [Concomitant]
     Dosage: UNK, TID
  3. LISINOPRIL [Concomitant]
     Dosage: 10 MG, QD
  4. MELOXICAM [Concomitant]
  5. ANALGESICS [Concomitant]
     Indication: PAIN
     Dosage: UNK, PRN
  6. FORTEO [Suspect]
     Indication: OSTEOPOROSIS
     Dosage: 20 UG, QD
  7. SINGULAIR [Concomitant]
     Dosage: 10 MG, QD
  8. NEXIUM [Concomitant]
     Dosage: 40 MG, QD
  9. FORTEO [Suspect]
     Dosage: 20 UG, QD
     Dates: start: 20120120
  10. GABAPENTIN [Concomitant]
     Dosage: 600 MG, QD
  11. PYRIDOSTIGMINE BROMIDE [Concomitant]
  12. ASPIRIN [Concomitant]
  13. PERSANTINE [Concomitant]
     Dosage: 75 MG, QD

REACTIONS (4)
  - UPPER LIMB FRACTURE [None]
  - LOWER LIMB FRACTURE [None]
  - MUSCULOSKELETAL STIFFNESS [None]
  - TENDON RUPTURE [None]
